FAERS Safety Report 21066878 (Version 1)
Quarter: 2022Q3

REPORT INFORMATION
  Report Type: Other
  Country: CA (occurrence: CA)
  Receive Date: 20220712
  Receipt Date: 20220712
  Transmission Date: 20221027
  Serious: Yes (Hospitalization)
  Sender: FDA-Public Use
  Company Number: CA-APOTEX-2022AP009864

PATIENT
  Age: 61 Year
  Sex: Female

DRUGS (5)
  1. TEMOZOLOMIDE [Suspect]
     Active Substance: TEMOZOLOMIDE
     Indication: Glioblastoma
     Dosage: 85 MILLIGRAM, QD
     Route: 048
  2. DEXAMETHASONE [Suspect]
     Active Substance: DEXAMETHASONE
     Indication: Product used for unknown indication
     Dosage: UNK
     Route: 065
  3. TEMODAL [Suspect]
     Active Substance: TEMOZOLOMIDE
     Indication: Glioblastoma
     Dosage: UNK
     Route: 048
  4. TEMODAL [Suspect]
     Active Substance: TEMOZOLOMIDE
     Dosage: 350 MILLIGRAM
     Route: 048
  5. TEMODAL [Suspect]
     Active Substance: TEMOZOLOMIDE
     Dosage: 85 MILLIGRAM, QD
     Route: 048

REACTIONS (5)
  - Adverse event [Unknown]
  - Product intolerance [Unknown]
  - Therapy change [Unknown]
  - Product substitution issue [Unknown]
  - Nausea [Unknown]
